FAERS Safety Report 6906643-5 (Version None)
Quarter: 2010Q3

REPORT INFORMATION
  Report Type: 
  Country: None (occurrence: None)
  Receive Date: 20100804
  Receipt Date: 20100723
  Transmission Date: 20110219
  Serious: Yes (Other)
  Sender: FDA-Public Use
  Company Number: US-PFIZER INC-2010092698

PATIENT
  Sex: Female
  Weight: 79.365 kg

DRUGS (11)
  1. LYRICA [Suspect]
     Indication: FIBROMYALGIA
     Dosage: UNK
     Route: 048
  2. NEXIUM [Concomitant]
     Indication: GASTROOESOPHAGEAL REFLUX DISEASE
     Dosage: 20 MG, UNK
     Route: 048
  3. NORTRIPTYLINE [Concomitant]
     Dosage: 150 MG, UNK
     Route: 048
  4. AMITRIPTYLINE HYDROCHLORIDE [Concomitant]
     Dosage: 25 MG, DAILY
     Route: 048
  5. LISINOPRIL [Concomitant]
     Indication: HYPERTENSION
     Dosage: 20 MG, DAILY
     Route: 048
  6. XANAX [Concomitant]
     Indication: ANXIETY
     Dosage: 1 MG, 2X/DAY
     Route: 048
  7. ZOCOR [Concomitant]
     Indication: BLOOD CHOLESTEROL INCREASED
     Dosage: 20 MG, DAILY
     Route: 048
  8. SERTRALINE HYDROCHLORIDE [Concomitant]
     Dosage: 50 MG, DAILY
     Route: 048
  9. AMBIEN [Concomitant]
     Dosage: 10 MG, DAILY
     Route: 048
  10. CALCIUM CITRATE [Concomitant]
     Dosage: UNK
  11. FISH OIL [Concomitant]
     Dosage: UNK

REACTIONS (7)
  - GASTROOESOPHAGEAL REFLUX DISEASE [None]
  - HIATUS HERNIA [None]
  - HYPERSOMNIA [None]
  - OEDEMA PERIPHERAL [None]
  - PHARYNGEAL OEDEMA [None]
  - SWOLLEN TONGUE [None]
  - TRIGEMINAL NEURALGIA [None]
